FAERS Safety Report 4265862-X (Version None)
Quarter: 2004Q1

REPORT INFORMATION
  Report Type: 
  Country: None (occurrence: None)
  Receive Date: 20040107
  Receipt Date: 20040107
  Transmission Date: 20041129
  Serious: Yes (Other)
  Sender: FDA-Public Use
  Company Number: None

PATIENT
  Age: 55 Year
  Sex: Male
  Weight: 112.0385 kg

DRUGS (6)
  1. CLINDAMYCIN HCL [Suspect]
     Indication: CELLULITIS
     Dosage: 600 MG IV Q 8 H
     Route: 042
  2. OXYCONTIN [Concomitant]
  3. ALTACE [Concomitant]
  4. VIOXX [Concomitant]
  5. 70/30 INSULIN [Concomitant]
  6. NS/HEP FLUSHES [Concomitant]

REACTIONS (1)
  - RASH [None]
